FAERS Safety Report 11964972 (Version 1)
Quarter: 2016Q1

REPORT INFORMATION
  Report Type: Spontaneous
  Country: None (occurrence: None)
  Receive Date: 20160125
  Receipt Date: 20160125
  Transmission Date: 20160526
  Serious: Yes (Other)
  Sender: FDA-Public Use
  Company Number: None

PATIENT
  Age: 3 Year
  Sex: Female
  Weight: 17.5 kg

DRUGS (25)
  1. HYDROCORTISONE. [Concomitant]
     Active Substance: HYDROCORTISONE
  2. MULTIVITAMIN [Concomitant]
     Active Substance: VITAMINS
  3. ASCORBIC ACID. [Concomitant]
     Active Substance: ASCORBIC ACID
  4. LABETALOL [Concomitant]
     Active Substance: LABETALOL\LABETALOL HYDROCHLORIDE
  5. MIDAZOLAM [Concomitant]
     Active Substance: MIDAZOLAM\MIDAZOLAM HYDROCHLORIDE
  6. RANITIDINE [Concomitant]
     Active Substance: RANITIDINE\RANITIDINE HYDROCHLORIDE
  7. VECURONIUM [Concomitant]
     Active Substance: VECURONIUM BROMIDE
  8. MAFENIDE TOPICAL [Concomitant]
  9. MAGNESIUM [Concomitant]
     Active Substance: MAGNESIUM
  10. OXACILLIN [Concomitant]
     Active Substance: OXACILLIN SODIUM
  11. DEXMEDETOMIDINE. [Concomitant]
     Active Substance: DEXMEDETOMIDINE
  12. CEFAZOLIN [Concomitant]
     Active Substance: CEFAZOLIN
  13. DOCUSATE [Concomitant]
     Active Substance: DOCUSATE
  14. FUROSEMIDE. [Concomitant]
     Active Substance: FUROSEMIDE
  15. NALOXONE [Concomitant]
     Active Substance: NALOXONE
  16. VASHE [Concomitant]
  17. DERMAPHOR DERMARITE [Suspect]
     Active Substance: MINERAL OIL\PARAFFIN\PETROLATUM
     Indication: THERAPEUTIC SKIN CARE TOPICAL
     Route: 061
  18. HYDROMORPHONE [Concomitant]
     Active Substance: HYDROMORPHONE
  19. ALBUMIN 5% [Concomitant]
     Active Substance: ALBUMIN (HUMAN)
  20. HEPARIN [Concomitant]
     Active Substance: HEPARIN SODIUM
  21. FENTANYL. [Concomitant]
     Active Substance: FENTANYL
  22. GENTAMICIN. [Concomitant]
     Active Substance: GENTAMICIN
  23. ROCURONIUM [Concomitant]
     Active Substance: ROCURONIUM BROMIDE
  24. MIRALAX [Concomitant]
     Active Substance: POLYETHYLENE GLYCOL 3350
  25. SENA (SENNOSIDE A+B) [Concomitant]
     Active Substance: SENNOSIDES A AND B

REACTIONS (1)
  - Application site discharge [None]

NARRATIVE: CASE EVENT DATE: 20150921
